FAERS Safety Report 9075136 (Version 1)
Quarter: 2013Q1

REPORT INFORMATION
  Report Type: Report from Study
  Country: US (occurrence: US)
  Receive Date: 20130129
  Receipt Date: 20130129
  Transmission Date: 20140127
  Serious: No
  Sender: FDA-Public Use
  Company Number: US-ABBOTT-12P-163-0923581-00

PATIENT
  Age: 35 Year
  Sex: Female

DRUGS (3)
  1. HUMIRA 40 MG/0.8 ML PEN [Suspect]
     Indication: PSORIASIS
     Dosage: LOADING DOSE
     Dates: start: 20120401, end: 20120401
  2. HUMIRA 40 MG/0.8 ML PEN [Suspect]
     Dates: start: 20120409
  3. CLOBEX [Concomitant]
     Indication: PSORIASIS
     Dosage: SPRAY TO PSORIASIS 1-2 TIMES PER DAY

REACTIONS (6)
  - Fatigue [Unknown]
  - Injection site bruising [Recovered/Resolved]
  - Injection site pain [Unknown]
  - Injection site pain [Unknown]
  - Malabsorption from injection site [Unknown]
  - Fatigue [Unknown]
